FAERS Safety Report 15666252 (Version 3)
Quarter: 2019Q3

REPORT INFORMATION
  Report Type: Spontaneous
  Country: US (occurrence: US)
  Receive Date: 20181128
  Receipt Date: 20190827
  Transmission Date: 20191004
  Serious: No
  Sender: FDA-Public Use
  Company Number: US-PFIZER INC-2018489416

PATIENT
  Age: 86 Year
  Sex: Female

DRUGS (9)
  1. CAPOTEN [Suspect]
     Active Substance: CAPTOPRIL
     Dosage: UNK
  2. GABAPENTIN ENACARBIL [Suspect]
     Active Substance: GABAPENTIN ENACARBIL
     Dosage: UNK
  3. LIPITOR [Suspect]
     Active Substance: ATORVASTATIN CALCIUM
     Dosage: UNK
  4. CIPROFLOXACIN. [Suspect]
     Active Substance: CIPROFLOXACIN
     Dosage: UNK
  5. GABAPENTIN. [Suspect]
     Active Substance: GABAPENTIN
     Dosage: UNK
  6. CEFIXIME. [Suspect]
     Active Substance: CEFIXIME
     Dosage: UNK
  7. CEPHALEXINE [Suspect]
     Active Substance: CEPHALEXIN
     Dosage: UNK
  8. ZESTRIL [Suspect]
     Active Substance: LISINOPRIL
     Dosage: UNK
  9. SUPRAX [Suspect]
     Active Substance: CEFIXIME
     Dosage: UNK

REACTIONS (1)
  - Drug hypersensitivity [Unknown]
